FAERS Safety Report 6594611-5 (Version None)
Quarter: 2010Q1

REPORT INFORMATION
  Report Type: 
  Country: None (occurrence: None)
  Receive Date: 20100222
  Receipt Date: 20090318
  Transmission Date: 20100710
  Serious: No
  Sender: FDA-Public Use
  Company Number: US-BRISTOL-MYERS SQUIBB COMPANY-14553762

PATIENT
  Sex: Male

DRUGS (1)
  1. TAXOL [Suspect]

REACTIONS (2)
  - NAIL DISORDER [None]
  - NEUROPATHY PERIPHERAL [None]
